FAERS Safety Report 5180828-3 (Version None)
Quarter: 2006Q4

REPORT INFORMATION
  Report Type: 
  Country: None (occurrence: None)
  Receive Date: 20061219
  Receipt Date: 20060831
  Transmission Date: 20070319
  Serious: No
  Sender: FDA-Public Use
  Company Number: US-AMGEN-KDL191951

PATIENT
  Sex: Female

DRUGS (1)
  1. ENBREL [Suspect]
     Indication: PSORIASIS
     Route: 058
     Dates: start: 20060518, end: 20060619

REACTIONS (4)
  - DYSPNOEA [None]
  - HEADACHE [None]
  - PRODUCTIVE COUGH [None]
  - UPPER RESPIRATORY TRACT INFECTION [None]
